FAERS Safety Report 7617573-8 (Version None)
Quarter: 2011Q3

REPORT INFORMATION
  Report Type: 
  Country: None (occurrence: None)
  Receive Date: 20110718
  Receipt Date: 20110706
  Transmission Date: 20111222
  Serious: Yes (Other)
  Sender: FDA-Public Use
  Company Number: FR-ELI_LILLY_AND_COMPANY-FR201001001493

PATIENT
  Sex: Female
  Weight: 74 kg

DRUGS (4)
  1. VINFLUNINE [Suspect]
     Indication: BREAST CANCER METASTATIC
     Dosage: 320 MG/M2, D1 EVERY 3 WEEKS
     Route: 042
     Dates: start: 20091123, end: 20091123
  2. GEMCITABINE HYDROCHLORIDE [Suspect]
     Indication: BREAST CANCER METASTATIC
     Dosage: 1000 MG/M2, D1+8 EVERY 3 WEEKS
     Route: 042
     Dates: start: 20091123, end: 20091123
  3. GEMCITABINE HYDROCHLORIDE [Suspect]
     Dosage: 750 MG/M2, OTHER (DAY ONE AND EIGHT EVERY 21 DAYS)
     Route: 042
  4. VINFLUNINE [Suspect]
     Dosage: 250 MG/M2, OTHER (ON DAY OE EVERY 21 DAYS)
     Route: 042

REACTIONS (1)
  - DEEP VEIN THROMBOSIS [None]
